FAERS Safety Report 9855394 (Version 1)
Quarter: 2014Q1

REPORT INFORMATION
  Report Type: Spontaneous
  Country: NO (occurrence: NO)
  Receive Date: 20140130
  Receipt Date: 20140130
  Transmission Date: 20141002
  Serious: Yes (Hospitalization)
  Sender: FDA-Public Use
  Company Number: NO-JNJFOC-20140118178

PATIENT
  Age: 75 Year
  Sex: Male

DRUGS (4)
  1. XARELTO [Suspect]
     Indication: CEREBROVASCULAR ACCIDENT PROPHYLAXIS
     Route: 048
     Dates: start: 20130117, end: 20130226
  2. XARELTO [Suspect]
     Indication: ATRIAL FIBRILLATION
     Route: 048
     Dates: start: 20130117, end: 20130226
  3. LANOXIN [Concomitant]
     Route: 048
  4. SELO ZOK [Concomitant]
     Route: 048

REACTIONS (7)
  - Speech disorder [Recovered/Resolved with Sequelae]
  - Haemorrhagic diathesis [Unknown]
  - Transient ischaemic attack [Recovered/Resolved with Sequelae]
  - Cerebrovascular accident [Recovered/Resolved with Sequelae]
  - Drug ineffective [Recovered/Resolved with Sequelae]
  - Monoplegia [Recovered/Resolved with Sequelae]
  - Muscular weakness [Recovered/Resolved]
